FAERS Safety Report 5968817-X (Version None)
Quarter: 2008Q4

REPORT INFORMATION
  Report Type: 
  Country: None (occurrence: None)
  Receive Date: 20081126
  Receipt Date: 20081118
  Transmission Date: 20090506
  Serious: Yes (Life-Threatening, Hospitalization, Other)
  Sender: FDA-Public Use
  Company Number: CA-JNJFOC-20081104849

PATIENT
  Sex: Female
  Weight: 59.5 kg

DRUGS (18)
  1. REMICADE [Suspect]
     Indication: CROHN'S DISEASE
     Route: 042
  2. BIAXIN [Suspect]
     Indication: BRONCHITIS
     Route: 048
  3. PRINIVIL [Suspect]
     Indication: DRUG USE FOR UNKNOWN INDICATION
     Route: 048
  4. DIMENHYDRINATE [Concomitant]
     Indication: DRUG USE FOR UNKNOWN INDICATION
     Dosage: PRE AND DURING INFUSION
     Route: 042
  5. SOLU-CORTEF [Concomitant]
     Indication: PREMEDICATION
  6. IMITREX [Concomitant]
     Indication: MIGRAINE
     Route: 058
  7. FUROSEMIDE [Concomitant]
     Indication: BLOOD PRESSURE
     Route: 048
  8. LYRICA [Concomitant]
     Route: 048
  9. RIVA D [Concomitant]
     Indication: VITAMIN SUPPLEMENTATION
     Route: 048
  10. CALCIUM [Concomitant]
     Route: 048
  11. PREMARIN [Concomitant]
     Indication: HORMONE REPLACEMENT THERAPY
     Route: 048
  12. TRAZODONE HCL [Concomitant]
     Indication: DRUG USE FOR UNKNOWN INDICATION
     Route: 048
  13. NITRAZEPAM [Concomitant]
     Indication: INSOMNIA
     Route: 048
  14. ALPRAZOL [Concomitant]
     Indication: ANXIETY
     Route: 048
  15. FLUNARIZINE [Concomitant]
     Indication: DRUG USE FOR UNKNOWN INDICATION
     Route: 048
  16. NOVOQUININE [Concomitant]
     Indication: MUSCLE SPASMS
     Route: 048
  17. PANTOLAC [Concomitant]
     Indication: DRUG USE FOR UNKNOWN INDICATION
     Route: 048
  18. NASONEX [Concomitant]
     Indication: BRONCHITIS

REACTIONS (5)
  - ANAPHYLACTIC SHOCK [None]
  - BRONCHITIS [None]
  - FALL [None]
  - LOSS OF CONSCIOUSNESS [None]
  - TONGUE DISCOLOURATION [None]
